FAERS Safety Report 19302353 (Version 2)
Quarter: 2022Q2

REPORT INFORMATION
  Report Type: Spontaneous
  Country: US (occurrence: US)
  Receive Date: 20210525
  Receipt Date: 20220421
  Transmission Date: 20220721
  Serious: No
  Sender: FDA-Public Use
  Company Number: US-PFIZER INC-2019399834

PATIENT
  Age: 84 Year
  Sex: Female
  Weight: 70.3 kg

DRUGS (2)
  1. LYRICA [Suspect]
     Active Substance: PREGABALIN
     Indication: Diabetic neuropathy
     Dosage: 50 MG, 4X/DAY (1 (ONE) CAPSULE BY MOUTH EVERY SIX HOURS)
     Route: 048
  2. LYRICA [Suspect]
     Active Substance: PREGABALIN
     Indication: Spinal disorder
     Dosage: 50 MG, 4X/DAY (50 MG AM, 50 LUNCH, 50 SUPPER, 50 AT BEDTIME)
     Route: 048
     Dates: start: 201803

REACTIONS (1)
  - Drug ineffective [Unknown]
